FAERS Safety Report 4687443-6 (Version None)
Quarter: 2005Q2

REPORT INFORMATION
  Report Type: 
  Country: None (occurrence: None)
  Receive Date: 20050610
  Receipt Date: 20050527
  Transmission Date: 20051028
  Serious: Yes (Hospitalization)
  Sender: FDA-Public Use
  Company Number: JP-JNJFOC-20050402186

PATIENT
  Sex: Male
  Weight: 78.2 kg

DRUGS (3)
  1. TARIVID [Suspect]
     Route: 049
     Dates: start: 20050326, end: 20050329
  2. NAPA [Concomitant]
     Route: 049
     Dates: start: 20050326, end: 20050329
  3. INTERFERON [Concomitant]
     Indication: HEPATITIS C

REACTIONS (8)
  - ALANINE AMINOTRANSFERASE DECREASED [None]
  - BLOOD BILIRUBIN INCREASED [None]
  - BLOOD CREATININE INCREASED [None]
  - BLOOD UREA INCREASED [None]
  - DISSEMINATED INTRAVASCULAR COAGULATION [None]
  - DRUG ERUPTION [None]
  - GENERALISED ERYTHEMA [None]
  - RASH PUSTULAR [None]
